FAERS Safety Report 20903187 (Version 2)
Quarter: 2022Q3

REPORT INFORMATION
  Report Type: Report from Study
  Country: BR (occurrence: BR)
  Receive Date: 20220601
  Receipt Date: 20220707
  Transmission Date: 20221027
  Serious: Yes (Hospitalization)
  Sender: FDA-Public Use
  Company Number: BR-JNJFOC-20220552430

PATIENT
  Age: 31 Year
  Sex: Male
  Weight: 80 kg

DRUGS (8)
  1. AMIVANTAMAB [Suspect]
     Active Substance: AMIVANTAMAB
     Indication: Non-small cell lung cancer metastatic
     Dosage: MOST RECENT DOSE ON 19-MAY-2022
     Route: 042
     Dates: start: 20211021
  2. BETAMETHASONE DIPROPIONATE + SULFATE GENTAMICIN [Concomitant]
     Indication: Dermatitis acneiform
     Route: 061
     Dates: start: 20211104
  3. DESONIDE [Concomitant]
     Active Substance: DESONIDE
     Indication: Dermatitis acneiform
     Dosage: DOSE 2 UNSPECIFIED UNIT
     Route: 061
     Dates: start: 20220408
  4. CICAPLAST [Concomitant]
     Indication: Dermatitis acneiform
     Dosage: DOSE 2 UNSPECIFIED UNIT
     Route: 061
     Dates: start: 20220408
  5. KETOCONAZOLE [Concomitant]
     Active Substance: KETOCONAZOLE
     Indication: Dermatitis acneiform
     Dosage: DOSE 2 UNITS UNSPECIFIED
     Route: 061
     Dates: start: 20220408
  6. ERYTHROMYCIN [Concomitant]
     Active Substance: ERYTHROMYCIN
     Indication: Dermatitis acneiform
     Dosage: 2 UNSPECIFIED UNITS
     Route: 061
     Dates: start: 20220408
  7. LYMECYCLINE [Concomitant]
     Active Substance: LYMECYCLINE
     Indication: Dermatitis acneiform
     Route: 048
     Dates: start: 20220412
  8. TRICHLOROACETIC ACID [Concomitant]
     Active Substance: TRICHLOROACETIC ACID
     Indication: Dermatitis acneiform
     Route: 048
     Dates: start: 20220504

REACTIONS (1)
  - Sepsis [Recovered/Resolved]

NARRATIVE: CASE EVENT DATE: 20220520
